FAERS Safety Report 16087720 (Version 1)
Quarter: 2019Q1

REPORT INFORMATION
  Report Type: Spontaneous
  Country: US (occurrence: US)
  Receive Date: 20190319
  Receipt Date: 20190319
  Transmission Date: 20190418
  Serious: Yes (Hospitalization)
  Sender: FDA-Public Use
  Company Number: US-PFIZER INC-2019113324

PATIENT
  Age: 92 Year
  Sex: Female

DRUGS (1)
  1. SILDENAFIL CITRATE. [Suspect]
     Active Substance: SILDENAFIL CITRATE
     Dosage: 20 MG, 2X/DAY

REACTIONS (4)
  - Pulmonary hypertension [Unknown]
  - Atrial fibrillation [Unknown]
  - Aortic stenosis [Unknown]
  - Intentional dose omission [Unknown]
